FAERS Safety Report 4711816-6 (Version None)
Quarter: 2005Q3

REPORT INFORMATION
  Report Type: 
  Country: None (occurrence: None)
  Receive Date: 20050712
  Receipt Date: 20050706
  Transmission Date: 20060218
  Serious: Yes (Hospitalization)
  Sender: FDA-Public Use
  Company Number: 2005CG01215

PATIENT
  Age: 86 Year
  Sex: Female

DRUGS (5)
  1. ATACAND [Suspect]
     Route: 048
  2. ACETAMINOPHEN [Suspect]
     Route: 048
  3. TIAPRIDAL [Suspect]
     Route: 048
  4. NOVATREX [Suspect]
     Route: 048
     Dates: end: 20050501
  5. NOVATREX [Suspect]
     Route: 048
     Dates: start: 20050501

REACTIONS (1)
  - PANCYTOPENIA [None]
